FAERS Safety Report 8544387-7 (Version None)
Quarter: 2012Q3

REPORT INFORMATION
  Report Type: 
  Country: None (occurrence: None)
  Receive Date: 20120727
  Receipt Date: 20120719
  Transmission Date: 20120928
  Serious: Yes (Other)
  Sender: FDA-Public Use
  Company Number: BR-ASTRAZENECA-2012SE51706

PATIENT
  Age: 87 Year
  Sex: Male

DRUGS (4)
  1. ATACAND HCT [Suspect]
     Indication: HYPERTENSION
     Dosage: 16/5 MG DAILY
     Route: 048
     Dates: end: 20120701
  2. ATACAND HCT [Suspect]
     Dosage: 16/5 MG BY MORNING
     Route: 048
  3. ATACAND HCT [Suspect]
     Indication: HYPERTENSION
     Dosage: 16/12.5 MG AT NIGHT
     Route: 048
  4. ATACAND HCT [Suspect]
     Dosage: 16/12.5 MG AT NIGHT
     Route: 048

REACTIONS (4)
  - POLLAKIURIA [None]
  - MUSCLE SPASMS [None]
  - BLOOD PRESSURE INCREASED [None]
  - DRUG INEFFECTIVE [None]
